FAERS Safety Report 20696809 (Version 1)
Quarter: 2022Q2

REPORT INFORMATION
  Report Type: Spontaneous
  Country: US (occurrence: None)
  Receive Date: 20220408
  Receipt Date: 20220408
  Transmission Date: 20220721
  Serious: Yes (Other)
  Sender: FDA-Public Use
  Company Number: None

PATIENT
  Age: 76 Year
  Sex: Female

DRUGS (1)
  1. ERIVEDGE [Suspect]
     Active Substance: VISMODEGIB
     Indication: Skin cancer
     Dosage: 150 MG DAILY ORAL?
     Route: 048
     Dates: start: 20210914

REACTIONS (2)
  - Taste disorder [None]
  - Alopecia [None]

NARRATIVE: CASE EVENT DATE: 20220328
